FAERS Safety Report 4375938-4 (Version None)
Quarter: 2004Q2

REPORT INFORMATION
  Report Type: 
  Country: None (occurrence: None)
  Receive Date: 20040611
  Receipt Date: 20040525
  Transmission Date: 20050107
  Serious: Yes (Life-Threatening)
  Sender: FDA-Public Use
  Company Number: PHHO2004JP07462

PATIENT
  Age: 23 Year
  Sex: Male
  Weight: 64 kg

DRUGS (11)
  1. NEORAL [Suspect]
     Indication: HEART TRANSPLANT
     Dosage: 200 MG / DAY
     Route: 048
     Dates: start: 20010317, end: 20010723
  2. NEORAL [Suspect]
     Dosage: 185 MG / DAY
     Route: 048
     Dates: start: 20010724, end: 20020521
  3. NEORAL [Suspect]
     Dosage: 70 MG / DAY
     Route: 048
     Dates: start: 20020522, end: 20020524
  4. NEORAL [Suspect]
     Dosage: 140 MG / DAY
     Route: 048
     Dates: start: 20020525, end: 20020529
  5. NEORAL [Suspect]
     Dosage: 200 MG / DAY
     Route: 048
     Dates: start: 20020530, end: 20030430
  6. NEORAL [Suspect]
     Dosage: 300 MG / DAY
     Route: 048
     Dates: start: 20030501, end: 20040326
  7. NEORAL [Suspect]
     Dosage: 275 MG / DAY
     Route: 048
     Dates: start: 20040327
  8. AZATHIOPRINE [Concomitant]
     Indication: HEART TRANSPLANT
     Dosage: 10 MG / DAY
     Route: 048
  9. SOLU-MEDROL [Concomitant]
     Indication: HEART TRANSPLANT
     Dosage: 2 G / DAY
     Route: 042
     Dates: start: 20020522, end: 20020524
  10. SEPAMIT [Concomitant]
     Route: 048
     Dates: start: 19980318, end: 20020521
  11. ALLOPURINOL [Concomitant]
     Route: 048

REACTIONS (6)
  - ATRIAL FLUTTER [None]
  - CARDIAC FAILURE ACUTE [None]
  - HEART TRANSPLANT REJECTION [None]
  - LEFT VENTRICULAR END-DIASTOLIC PRESSURE INCREASED [None]
  - SURGERY [None]
  - THERAPEUTIC PROCEDURE [None]
